FAERS Safety Report 22052020 (Version 1)
Quarter: 2023Q1

REPORT INFORMATION
  Report Type: Spontaneous
  Country: GB (occurrence: GB)
  Receive Date: 20230302
  Receipt Date: 20230302
  Transmission Date: 20230417
  Serious: Yes (Life-Threatening, Other)
  Sender: FDA-Public Use
  Company Number: None

PATIENT
  Age: 15 Year
  Sex: Male
  Weight: 53 kg

DRUGS (1)
  1. CONCERTA [Suspect]
     Active Substance: METHYLPHENIDATE HYDROCHLORIDE
     Indication: Product used for unknown indication
     Dosage: EVERY MORNING
     Route: 048

REACTIONS (3)
  - Suicidal ideation [Recovering/Resolving]
  - Suicide attempt [Unknown]
  - Depressed mood [Unknown]

NARRATIVE: CASE EVENT DATE: 20230115
